FAERS Safety Report 21774802 (Version 2)
Quarter: 2023Q1

REPORT INFORMATION
  Report Type: Spontaneous
  Country: CH (occurrence: CH)
  Receive Date: 20221224
  Receipt Date: 20230120
  Transmission Date: 20230417
  Serious: Yes (Death, Other)
  Sender: FDA-Public Use
  Company Number: CH-AMGEN-CHESP2022221723

PATIENT
  Age: 50 Year
  Sex: Male

DRUGS (2)
  1. BLINCYTO [Suspect]
     Active Substance: BLINATUMOMAB
     Indication: Burkitt^s lymphoma recurrent
     Dosage: 9 MICROGRAM, QD
     Route: 040
  2. BLINCYTO [Suspect]
     Active Substance: BLINATUMOMAB
     Indication: Off label use
     Dosage: 28 MICROGRAM, QD
     Route: 040

REACTIONS (5)
  - Acute hepatic failure [Fatal]
  - Graft versus host disease [Fatal]
  - Burkitt^s lymphoma recurrent [Unknown]
  - Drug ineffective for unapproved indication [Unknown]
  - Off label use [Unknown]
